FAERS Safety Report 9633518 (Version 3)
Quarter: 2013Q4

REPORT INFORMATION
  Report Type: Spontaneous
  Country: GB (occurrence: GB)
  Receive Date: 20131021
  Receipt Date: 20131224
  Transmission Date: 20140711
  Serious: Yes (Other)
  Sender: FDA-Public Use
  Company Number: PHFR2013GB005857

PATIENT
  Age: 54 Year
  Sex: Male

DRUGS (5)
  1. CLOZARIL [Suspect]
     Indication: SCHIZOPHRENIA
     Dosage: UNK
     Route: 048
     Dates: start: 20130918
  2. CLOZARIL [Suspect]
     Dosage: UNK
  3. PROPANTHELINE [Concomitant]
     Indication: SALIVARY HYPERSECRETION
     Dosage: 15 MG, UNK
     Route: 048
     Dates: start: 20131009
  4. GAVISCON                                /GFR/ [Concomitant]
     Indication: DYSPEPSIA
     Dosage: 0 TO 10 ML
     Route: 048
  5. HIBERNA//PROMETHAZINE HYDROCHLORIDE [Concomitant]
     Indication: AGITATION
     Dosage: 25 MG, UNK
     Route: 048
     Dates: start: 20131017

REACTIONS (3)
  - Differential white blood cell count abnormal [Not Recovered/Not Resolved]
  - Eosinophilia [Recovered/Resolved]
  - Eosinophil count increased [Recovering/Resolving]
